FAERS Safety Report 5328425-0 (Version None)
Quarter: 2007Q2

REPORT INFORMATION
  Report Type: 
  Country: None (occurrence: None)
  Receive Date: 20070516
  Receipt Date: 20070516
  Transmission Date: 20071010
  Serious: Yes (Hospitalization, Disabling)
  Sender: FDA-Public Use
  Company Number: None

PATIENT
  Age: 36 Year
  Sex: Female
  Weight: 97.5234 kg

DRUGS (1)
  1. TOPAMAX [Suspect]
     Indication: MIGRAINE
     Dosage: 25MG TWICE DAILY PO
     Route: 048
     Dates: start: 20070504, end: 20070514

REACTIONS (2)
  - ANGLE CLOSURE GLAUCOMA [None]
  - MYOPATHY [None]
